FAERS Safety Report 23111418 (Version 2)
Quarter: 2025Q1

REPORT INFORMATION
  Report Type: Spontaneous
  Country: US (occurrence: US)
  Receive Date: 20231026
  Receipt Date: 20250121
  Transmission Date: 20250409
  Serious: Yes (Other)
  Sender: MYLAN
  Company Number: US-MYLANLABS-2023M1112872

PATIENT
  Age: 59 Year
  Sex: Male
  Weight: 92.98 kg

DRUGS (28)
  1. HYDROCHLOROTHIAZIDE\VALSARTAN [Suspect]
     Active Substance: HYDROCHLOROTHIAZIDE\VALSARTAN
     Indication: Hypertension
     Route: 065
  2. ALBUTEROL SULFATE [Concomitant]
     Active Substance: ALBUTEROL SULFATE
     Dosage: UNK, Q4H (INHALE 2 PUFFS EVERY 4 HOURS AS NEEDED)
     Route: 055
     Dates: start: 20150520
  3. ASPIRIN [Concomitant]
     Active Substance: ASPIRIN
     Dosage: 81 MILLIGRAM, QD (1 TABLET DAILY)
     Route: 065
     Dates: start: 20040209
  4. DOVONEX [Concomitant]
     Active Substance: CALCIPOTRIENE
     Dosage: UNK, BID (APPLY 2 TIMES DAILY)
     Route: 065
     Dates: start: 20181024
  5. KLONOPIN [Concomitant]
     Active Substance: CLONAZEPAM
     Dosage: 0.5 MILLIGRAM, HS (TAKE 1 TAB BY MOUTH ONE TIME DAILY AT BEDTIME)
     Route: 048
     Dates: start: 20190212
  6. COENZYME Q10 [Concomitant]
     Active Substance: DIETARY SUPPLEMENT\UBIDECARENONE
     Dosage: UNK, QD (1 TABLET DAILY)
     Route: 048
  7. DESOWEN [Concomitant]
     Active Substance: DESONIDE
     Route: 061
     Dates: start: 20141030
  8. FISH OIL [Concomitant]
     Active Substance: FISH OIL
     Dosage: UNK, QD
     Route: 048
  9. LIDEX [Concomitant]
     Active Substance: FLUOCINONIDE
     Route: 065
     Dates: start: 20190522
  10. FOLVITE [Concomitant]
     Active Substance: FOLIC ACID
     Dosage: 1 MILLIGRAM, QD (TAKE 1 TAB BY MOUTH ONE TIME DAILY)
     Route: 048
     Dates: start: 20181001
  11. FOLVITE [Concomitant]
     Active Substance: FOLIC ACID
     Dosage: 1 MILLIGRAM, QD (TAKE 1 TAB BY MOUTH ONE TIME DAILY)
     Route: 048
     Dates: start: 20180228
  12. HYDRODIURIL [Concomitant]
     Active Substance: HYDROCHLOROTHIAZIDE
     Dosage: 25 MILLIGRAM, QD (TAKE 1 TAB BY MOUTH ONE TIME DAILY)
     Route: 048
     Dates: start: 20191001
  13. MOTRIN [Concomitant]
     Active Substance: IBUPROFEN
     Dosage: 400 MILLIGRAM, Q8H (TAKE 400 MG BY MOUTH EVERY 8 HOURS AS NEEDED)
     Route: 048
  14. ATIVAN [Concomitant]
     Active Substance: LORAZEPAM
     Dosage: UNK UNK, Q6H (TAKE 0.5-1 TABS BY MOUTH EVERY 6 HOURS AS NEEDED)
     Route: 048
     Dates: start: 20180309
  15. COZAAR [Concomitant]
     Active Substance: LOSARTAN POTASSIUM
     Dosage: 50 MILLIGRAM, QD (TAKE 1 TAB BY MOUTH ONE TIME DAILY)
     Route: 048
     Dates: start: 20191001
  16. HYZAAR [Concomitant]
     Active Substance: HYDROCHLOROTHIAZIDE\LOSARTAN POTASSIUM
     Dosage: UNK, QD (: TAKE 1 TAB BY MOUTH ONE TIME DAILY)
     Route: 048
     Dates: start: 20190701
  17. MAGNESIUM [Concomitant]
     Active Substance: MAGNESIUM
     Dosage: 100 MILLIGRAM, QD (1 TABLET DAILY)
     Route: 048
  18. MOBIC [Concomitant]
     Active Substance: MELOXICAM
     Dosage: 15 MILLIGRAM, QD (TAKE 1 TAB BY MOUTH ONE TIME DAILY)
     Route: 048
     Dates: start: 20190625
  19. TREXALL [Concomitant]
     Active Substance: METHOTREXATE SODIUM
     Dosage: 15 MILLIGRAM, QW (UNDER SKIN ONCE WEEKLY)
     Route: 058
     Dates: start: 20181220
  20. MINERALS\VITAMINS [Concomitant]
     Active Substance: MINERALS\VITAMINS
     Dosage: UNK, QD (TAKE BY MOUTH ONE TIME DAILY)
     Route: 048
  21. BACTROBAN [Concomitant]
     Active Substance: MUPIROCIN CALCIUM
     Dosage: UNK, TID (APPLY 1 DOSE 3 TIMES DAILY)
     Route: 065
     Dates: start: 20180321
  22. PRILOSEC [Concomitant]
     Active Substance: OMEPRAZOLE MAGNESIUM
     Dosage: 20 MILLIGRAM, BID ( TAKE 1 CAPSULE BY MOUTH TWICE DAILY)
     Route: 048
     Dates: start: 20190412
  23. ZOFRAN [Concomitant]
     Active Substance: ONDANSETRON HYDROCHLORIDE
     Indication: Nausea
     Dosage: 4 MILLIGRAM, Q8H (: TAKE 1 TAB BY MOUTH EVERY 8 HOURS AS NEEDED)
     Route: 048
     Dates: start: 20180305
  24. ZOFRAN [Concomitant]
     Active Substance: ONDANSETRON HYDROCHLORIDE
     Indication: Vomiting
  25. ZOLOFT [Concomitant]
     Active Substance: SERTRALINE HYDROCHLORIDE
     Dosage: 50 MILLIGRAM, QD (TAKE 1 TAB BY MOUTH ONE TIME DAILY.)
     Route: 048
     Dates: start: 20190212
  26. DIOVAN HCT [Concomitant]
     Active Substance: HYDROCHLOROTHIAZIDE\VALSARTAN
     Dosage: UNK, QD (TAKE 1 TAB BY MOUTH ONE TIME DAILY)
     Route: 048
     Dates: start: 20180122
  27. VITAMIN B12 [Concomitant]
     Active Substance: CYANOCOBALAMIN
     Dosage: UNK, QD (1 TABLET DAILY)
     Route: 048
  28. VITAMIN D [Concomitant]
     Active Substance: VITAMIN D NOS
     Dosage: UNK, QD (ONE DAILY)
     Route: 065

REACTIONS (1)
  - Prostate cancer [Recovered/Resolved]

NARRATIVE: CASE EVENT DATE: 20211123
